FAERS Safety Report 13254122 (Version 2)
Quarter: 2019Q3

REPORT INFORMATION
  Report Type: Report from Study
  Country: US (occurrence: US)
  Receive Date: 20170221
  Receipt Date: 20190808
  Transmission Date: 20191004
  Serious: Yes (Hospitalization)
  Sender: FDA-Public Use
  Company Number: US-BAXTER-2017BAX006372

PATIENT
  Age: 37 Year
  Sex: Female
  Weight: 59.07 kg

DRUGS (24)
  1. 0.9% SODIUM CHLORIDE INJECTION [Suspect]
     Active Substance: SODIUM CHLORIDE
     Dosage: 125 ML/HR, CONTINUOUS, REGIMEN#3
     Route: 041
     Dates: start: 20161216, end: 20161219
  2. TEMAZEPAM. [Concomitant]
     Active Substance: TEMAZEPAM
     Indication: INSOMNIA
     Route: 065
     Dates: start: 20110627
  3. PF-06460031 [Suspect]
     Active Substance: RIVIPANSEL
     Indication: SICKLE CELL ANAEMIA WITH CRISIS
     Dosage: REGIMEN#1
     Route: 042
     Dates: start: 20161216, end: 20161216
  4. SERTRALINE [Concomitant]
     Active Substance: SERTRALINE HYDROCHLORIDE
     Indication: DEPRESSION
     Route: 065
     Dates: start: 20160913
  5. XARELTO [Concomitant]
     Active Substance: RIVAROXABAN
     Indication: THROMBOSIS PROPHYLAXIS
     Route: 065
     Dates: start: 20160624
  6. FOLIC ACID. [Concomitant]
     Active Substance: FOLIC ACID
     Indication: SICKLE CELL DISEASE
     Route: 065
     Dates: start: 20100610
  7. TRIAMCINOLONE [Concomitant]
     Active Substance: TRIAMCINOLONE
     Indication: DERMATITIS CONTACT
     Route: 065
     Dates: start: 20140219
  8. ERGOCALCIFEROL. [Concomitant]
     Active Substance: ERGOCALCIFEROL
     Indication: PRODUCT USED FOR UNKNOWN INDICATION
     Route: 065
     Dates: start: 20160527
  9. PF-06460031 [Suspect]
     Active Substance: RIVIPANSEL
     Dosage: REGIMEN#5
     Route: 042
     Dates: start: 20161220, end: 20161220
  10. ABACAVIR W/DOLUTEGRAVIR/LAMIVUDINE [Concomitant]
     Active Substance: ABACAVIR SULFATE\DOLUTEGRAVIR SODIUM\LAMIVUDINE
     Indication: HIV INFECTION
     Route: 065
     Dates: start: 20161014
  11. POLYETHYLENE GLYCOL [Concomitant]
     Active Substance: POLYETHYLENE GLYCOLS
     Indication: CONSTIPATION
     Route: 065
     Dates: start: 20160112
  12. 0.9% SODIUM CHLORIDE INJECTION [Suspect]
     Active Substance: SODIUM CHLORIDE
     Dosage: DOSE REDUCED
     Route: 041
  13. CALCIUM CARBONATE. [Concomitant]
     Active Substance: CALCIUM CARBONATE
     Indication: MINERAL SUPPLEMENTATION
     Route: 065
     Dates: start: 20150304
  14. PF-06460031 [Suspect]
     Active Substance: RIVIPANSEL
     Dosage: REGIMEN#2
     Route: 042
     Dates: start: 20161217, end: 20161217
  15. ASPIRINE [Concomitant]
     Active Substance: ASPIRIN
     Indication: PROPHYLAXIS
     Route: 065
     Dates: start: 20150612
  16. BOOST PLUS [Concomitant]
     Active Substance: DIETARY SUPPLEMENT
     Indication: NUTRITIONAL SUPPLEMENTATION
     Route: 065
     Dates: start: 20160525
  17. 0.9% SODIUM CHLORIDE INJECTION [Suspect]
     Active Substance: SODIUM CHLORIDE
     Indication: FLUID REPLACEMENT
     Dosage: 75 ML/HR, CONTINUOUS, REGIMEN#1
     Route: 041
     Dates: start: 20161215, end: 20161215
  18. 0.9% SODIUM CHLORIDE INJECTION [Suspect]
     Active Substance: SODIUM CHLORIDE
     Dosage: 125 ML/HR, CONTINUOUS, REGIMEN#2
     Route: 041
     Dates: start: 20161215, end: 20161216
  19. 0.9% SODIUM CHLORIDE INJECTION [Suspect]
     Active Substance: SODIUM CHLORIDE
     Dosage: 50 ML/HR, CONTINUOUS, REGIMEN#4
     Route: 041
     Dates: start: 20161219, end: 20161220
  20. PF-06460031 [Suspect]
     Active Substance: RIVIPANSEL
     Dosage: REGIMEN#4
     Route: 042
     Dates: start: 20161219, end: 20161219
  21. VITAMIN D [Concomitant]
     Active Substance: VITAMIN D NOS
     Indication: SUPPLEMENTATION THERAPY
     Route: 065
     Dates: start: 20150304
  22. 0.9% SODIUM CHLORIDE INJECTION [Suspect]
     Active Substance: SODIUM CHLORIDE
     Dosage: 500 ML/HR, REGIMEN#5
     Route: 040
     Dates: start: 20161219, end: 20161219
  23. PF-06460031 [Suspect]
     Active Substance: RIVIPANSEL
     Dosage: REGIMEN#3
     Route: 042
     Dates: start: 20161218, end: 20161218
  24. HYDROMORPHONE [Concomitant]
     Active Substance: HYDROMORPHONE
     Indication: PAIN
     Route: 065
     Dates: start: 20160916

REACTIONS (1)
  - Fluid overload [Recovered/Resolved]

NARRATIVE: CASE EVENT DATE: 20161218
